FAERS Safety Report 8917283 (Version 2)
Quarter: 2013Q1

REPORT INFORMATION
  Report Type: Spontaneous
  Country: US (occurrence: US)
  Receive Date: 20121120
  Receipt Date: 20130322
  Transmission Date: 20140127
  Serious: Yes (Other)
  Sender: FDA-Public Use
  Company Number: US-BAYER-2012-119481

PATIENT
  Age: 31 Year
  Sex: Female
  Weight: 70.3 kg

DRUGS (11)
  1. YAZ [Suspect]
     Indication: CONTRACEPTION
     Dosage: UNK
     Dates: start: 200303, end: 200711
  2. YAZ [Suspect]
     Indication: ENDOMETRIOSIS
  3. YASMIN [Suspect]
     Indication: ENDOMETRIOSIS
     Dosage: UNK
     Dates: start: 200803, end: 200909
  4. YASMIN [Suspect]
     Indication: CONTRACEPTION
  5. CIPRO [Concomitant]
     Dosage: UNK
     Dates: start: 20090728, end: 20091023
  6. VICODIN [Concomitant]
     Dosage: UNK
     Dates: start: 20090728, end: 20091023
  7. PREVPAC [Concomitant]
     Dosage: UNK
     Dates: start: 20090806
  8. PANTOPRAZOLE [Concomitant]
     Dosage: UNK
     Dates: start: 20090808
  9. CECLOR [Concomitant]
  10. LORTAB [Concomitant]
  11. CLARITHROMYCIN [Concomitant]

REACTIONS (9)
  - Cholelithiasis [None]
  - Injury [None]
  - Pain [None]
  - Emotional distress [None]
  - General physical health deterioration [None]
  - Anxiety [None]
  - Gallbladder pain [None]
  - Pelvic pain [None]
  - Cholecystitis chronic [None]
